FAERS Safety Report 5468770-1 (Version None)
Quarter: 2007Q3

REPORT INFORMATION
  Report Type: 
  Country: None (occurrence: None)
  Receive Date: 20070820
  Receipt Date: 20070530
  Transmission Date: 20080115
  Serious: No
  Sender: FDA-Public Use
  Company Number: WAES 0704USA01631

PATIENT
  Age: 70 Year
  Sex: Male
  Weight: 89.8122 kg

DRUGS (15)
  1. JANUVIA [Suspect]
     Indication: TYPE 2 DIABETES MELLITUS
     Dosage: 100 MG/DAILY/PO; 100 MG/DAILY/PO
     Route: 048
     Dates: start: 20061102
  2. ACTOS [Concomitant]
  3. ALLEGRA [Concomitant]
  4. AMARYL [Concomitant]
  5. ANDROGEL [Concomitant]
  6. CORGARD [Concomitant]
  7. GLUCOPHAGE [Concomitant]
  8. PROTONIX [Concomitant]
  9. SINGULAIR [Concomitant]
  10. SLOW FE [Concomitant]
  11. TOPROL-XL [Concomitant]
  12. ZOCOR [Concomitant]
  13. ZYLOPRIM [Concomitant]
  14. CYANOCOBALAMIN [Concomitant]
  15. IMMUNE GLOBULIN (HUMAN) [Concomitant]

REACTIONS (2)
  - SUPRAVENTRICULAR EXTRASYSTOLES [None]
  - VENTRICULAR EXTRASYSTOLES [None]
